FAERS Safety Report 8402843-6 (Version None)
Quarter: 2012Q2

REPORT INFORMATION
  Report Type: 
  Country: None (occurrence: None)
  Receive Date: 20120601
  Receipt Date: 20120531
  Transmission Date: 20120825
  Serious: Yes (Other)
  Sender: FDA-Public Use
  Company Number: SG-BAYER-2012-054129

PATIENT
  Age: 36 Year
  Sex: Female

DRUGS (1)
  1. MOXIFLOXACIN [Suspect]

REACTIONS (2)
  - CRYING [None]
  - WHEEZING [None]
